FAERS Safety Report 25275431 (Version 2)
Quarter: 2025Q2

REPORT INFORMATION
  Report Type: Spontaneous
  Country: JP (occurrence: None)
  Receive Date: 20250506
  Receipt Date: 20250515
  Transmission Date: 20250717
  Serious: Yes (Death)
  Sender: INCYTE
  Company Number: JP-002147023-NVSJ2025JP004815

PATIENT

DRUGS (1)
  1. RUXOLITINIB [Suspect]
     Active Substance: RUXOLITINIB
     Indication: Primary myelofibrosis

REACTIONS (2)
  - Malignant neoplasm progression [Fatal]
  - Primary myelofibrosis [Fatal]
